FAERS Safety Report 4681798-4 (Version None)
Quarter: 2005Q2

REPORT INFORMATION
  Report Type: 
  Country: None (occurrence: None)
  Receive Date: 20050601
  Receipt Date: 20050516
  Transmission Date: 20051028
  Serious: Yes (Hospitalization, Other)
  Sender: FDA-Public Use
  Company Number: 2005063455

PATIENT
  Age: 46 Year
  Sex: Female
  Weight: 99.7913 kg

DRUGS (15)
  1. CELEBREX [Suspect]
     Indication: RHEUMATOID ARTHRITIS
     Dates: end: 20040101
  2. BEXTRA [Suspect]
     Indication: RHEUMATOID ARTHRITIS
     Dosage: 20 MG (20 MG 1 IN 1 D) ORAL
     Route: 048
     Dates: start: 20040101, end: 20050408
  3. ... [Suspect]
  4. ALLOPURINOL [Suspect]
     Indication: GOUT
     Dates: end: 20050101
  5. AUGMENTIN '125' [Suspect]
     Indication: SINUSITIS
     Dates: start: 20050201
  6. TRICOR [Suspect]
     Indication: HYPERLIPIDAEMIA
  7. CALCIUM (CALCIUM) [Suspect]
     Dosage: 1200 MG ORAL
     Route: 048
  8. ZIAC [Concomitant]
  9. LOTREL [Concomitant]
  10. GLUCOTROL XL [Concomitant]
  11. PLAQUENIL [Concomitant]
  12. PREDNISONE [Concomitant]
  13. VICODIN [Concomitant]
  14. CHLORPHENIRAMINE (CHLORPHENIRAMINE) [Concomitant]
  15. FLEXERIL [Concomitant]

REACTIONS (46)
  - ADVERSE DRUG REACTION [None]
  - ANAEMIA [None]
  - ANOREXIA [None]
  - ARTHRALGIA [None]
  - BLOOD PARATHYROID HORMONE DECREASED [None]
  - CARDIAC MURMUR [None]
  - CARDIOMEGALY [None]
  - CHILLS [None]
  - DIARRHOEA [None]
  - DRUG ERUPTION [None]
  - EAR INFECTION [None]
  - EAR PAIN [None]
  - EATING DISORDER [None]
  - ELECTROCARDIOGRAM ST SEGMENT ABNORMAL [None]
  - EOSINOPHILIA [None]
  - FATIGUE [None]
  - FEELING ABNORMAL [None]
  - GOUTY ARTHRITIS [None]
  - HYPERCALCAEMIA [None]
  - IMPAIRED WORK ABILITY [None]
  - INFLUENZA LIKE ILLNESS [None]
  - JOINT INJURY [None]
  - MALAISE [None]
  - MITRAL VALVE DISEASE [None]
  - MOUTH ULCERATION [None]
  - MUCOSAL DISCOLOURATION [None]
  - NAUSEA [None]
  - NEPHRITIS INTERSTITIAL [None]
  - NIGHT SWEATS [None]
  - OEDEMA PERIPHERAL [None]
  - PAIN [None]
  - PSORIASIS [None]
  - PYREXIA [None]
  - PYURIA [None]
  - RASH ERYTHEMATOUS [None]
  - RASH PRURITIC [None]
  - RENAL FAILURE [None]
  - RETCHING [None]
  - SINUSITIS [None]
  - SKIN WRINKLING [None]
  - SOMNOLENCE [None]
  - SPLENOMEGALY [None]
  - STOMATITIS [None]
  - VOMITING [None]
  - VULVAL ERYTHEMA [None]
  - WEIGHT DECREASED [None]
